FAERS Safety Report 19700571 (Version 1)
Quarter: 2021Q3

REPORT INFORMATION
  Report Type: Spontaneous
  Country: US (occurrence: US)
  Receive Date: 20210813
  Receipt Date: 20210813
  Transmission Date: 20211014
  Serious: Yes (Other)
  Sender: FDA-Public Use
  Company Number: US-SA-2021SA264118

PATIENT
  Age: 70 Year
  Sex: Male

DRUGS (1)
  1. LEMTRADA [Suspect]
     Active Substance: ALEMTUZUMAB

REACTIONS (4)
  - Memory impairment [Unknown]
  - Multiple sclerosis [Unknown]
  - Cardiac operation [Unknown]
  - Cardiac pacemaker insertion [Unknown]
